FAERS Safety Report 5710850-7 (Version None)
Quarter: 2008Q2

REPORT INFORMATION
  Report Type: 
  Country: None (occurrence: None)
  Receive Date: 20080417
  Receipt Date: 20080417
  Transmission Date: 20081010
  Serious: Yes (Disabling)
  Sender: FDA-Public Use
  Company Number: None

PATIENT
  Age: 66 Year
  Sex: Female
  Weight: 60.782 kg

DRUGS (1)
  1. METOPROLOL SUCCINATE [Suspect]
     Indication: CARDIOVASCULAR DISORDER
     Dosage: 1 TABLET SWALLOWED DAILY
     Dates: start: 20080314, end: 20080316

REACTIONS (8)
  - BLOOD PRESSURE INCREASED [None]
  - DIZZINESS [None]
  - HEADACHE [None]
  - OEDEMA GENITAL [None]
  - PHARMACEUTICAL PRODUCT COMPLAINT [None]
  - VULVAL DISORDER [None]
  - VULVOVAGINAL BURNING SENSATION [None]
  - VULVOVAGINAL PRURITUS [None]
